FAERS Safety Report 11063502 (Version 3)
Quarter: 2015Q2

REPORT INFORMATION
  Report Type: Spontaneous
  Country: US (occurrence: US)
  Receive Date: 20150424
  Receipt Date: 20150602
  Transmission Date: 20150821
  Serious: Yes (Hospitalization)
  Sender: FDA-Public Use
  Company Number: US-SA-2015SA050541

PATIENT
  Sex: Male

DRUGS (3)
  1. SOLOSTAR U300 [Concomitant]
  2. AFREZZA [Suspect]
     Active Substance: INSULIN HUMAN
     Route: 065
  3. TOUJEO [Suspect]
     Active Substance: INSULIN GLARGINE

REACTIONS (1)
  - Diabetic ketoacidosis [Recovering/Resolving]
